FAERS Safety Report 11660508 (Version 3)
Quarter: 2015Q4

REPORT INFORMATION
  Report Type: Spontaneous
  Country: PR (occurrence: None)
  Receive Date: 20151026
  Receipt Date: 20151109
  Transmission Date: 20160304
  Serious: No
  Sender: FDA-Public Use
  Company Number: PR-MDT-ADR-2015-02023

PATIENT
  Age: 41 Year
  Sex: Male

DRUGS (2)
  1. LIORESAL [Suspect]
     Active Substance: BACLOFEN
  2. LIORESAL [Suspect]
     Active Substance: BACLOFEN
     Dosage: 149.9 MCG/DAY

REACTIONS (3)
  - Insomnia [None]
  - Anxiety [None]
  - Pain [None]
